FAERS Safety Report 8381839 (Version 2)
Quarter: 2012Q4

REPORT INFORMATION
  Report Type: 
  Country: US (occurrence: US)
  Receive Date: 20120201
  Receipt Date: 20120927
  Transmission Date: 20130627
  Serious: Yes (Death)
  Sender: FDA-Public Use
  Company Number: US-ROCHE-1035076

PATIENT
  Sex: Female

DRUGS (2)
  1. AVASTIN [Suspect]
     Indication: COLON CANCER
  2. AVASTIN [Suspect]
     Indication: COLON CANCER

REACTIONS (2)
  - Death [Fatal]
  - Malignant neoplasm progression [Unknown]
